FAERS Safety Report 8993335 (Version 1)
Quarter: 2013Q1

REPORT INFORMATION
  Report Type: Spontaneous
  Country: FR (occurrence: FR)
  Receive Date: 20130102
  Receipt Date: 20130102
  Transmission Date: 20140127
  Serious: Yes (Hospitalization, Other)
  Sender: FDA-Public Use
  Company Number: FR-ASTRAZENECA-2012SE95595

PATIENT
  Age: 25816 Day
  Sex: Female

DRUGS (10)
  1. INEXIUM [Suspect]
     Route: 042
     Dates: start: 20121106, end: 201211
  2. NEXIUM [Suspect]
     Route: 048
     Dates: start: 201211, end: 20121116
  3. ATENOLOL [Concomitant]
  4. TAREG [Concomitant]
  5. LEVOTHYROX [Concomitant]
  6. CLARADOL CAFEINE [Concomitant]
     Dosage: AS REQUIRED
  7. TETRAZEPAM [Concomitant]
  8. HEXAQUINE [Concomitant]
     Dosage: TWO TIMES DAILY
  9. PANFUREX [Concomitant]
     Dosage: 200 THREE TIMES A DAY
  10. KARDEGIC [Concomitant]

REACTIONS (5)
  - Hiatus hernia [Unknown]
  - Pulmonary embolism [Unknown]
  - Colon adenoma [Unknown]
  - Autoimmune hepatitis [Unknown]
  - Hepatitis cholestatic [Recovering/Resolving]
